FAERS Safety Report 7014629-8 (Version None)
Quarter: 2010Q3

REPORT INFORMATION
  Report Type: 
  Country: None (occurrence: None)
  Receive Date: 20100927
  Receipt Date: 20100917
  Transmission Date: 20110219
  Serious: Yes (Hospitalization)
  Sender: FDA-Public Use
  Company Number: JP-ROCHE-721409

PATIENT
  Sex: Male
  Weight: 64.5 kg

DRUGS (2)
  1. CAPECITABINE [Suspect]
     Indication: COLON CANCER METASTATIC
     Route: 048
     Dates: start: 20100430, end: 20100510
  2. ELPLAT [Suspect]
     Indication: COLON CANCER METASTATIC
     Route: 042
     Dates: start: 20100507, end: 20100507

REACTIONS (7)
  - BLOOD CREATININE INCREASED [None]
  - DEHYDRATION [None]
  - DIARRHOEA [None]
  - ILEUS PARALYTIC [None]
  - NEUTROPHIL COUNT DECREASED [None]
  - PNEUMONIA [None]
  - WHITE BLOOD CELL COUNT DECREASED [None]
